FAERS Safety Report 8005199-6 (Version None)
Quarter: 2011Q4

REPORT INFORMATION
  Report Type: 
  Country: None (occurrence: None)
  Receive Date: 20111223
  Receipt Date: 20111213
  Transmission Date: 20120403
  Serious: Yes (Other)
  Sender: FDA-Public Use
  Company Number: PHHY2011AR109548

PATIENT
  Age: 76 Year
  Sex: Female

DRUGS (1)
  1. EXELON [Suspect]
     Route: 062
     Dates: start: 20110101

REACTIONS (3)
  - HEAD INJURY [None]
  - FALL [None]
  - APPLICATION SITE PRURITUS [None]
